FAERS Safety Report 5097553-X (Version None)
Quarter: 2006Q3

REPORT INFORMATION
  Report Type: 
  Country: None (occurrence: None)
  Receive Date: 20060901
  Receipt Date: 20060824
  Transmission Date: 20061208
  Serious: Yes (Other)
  Sender: FDA-Public Use
  Company Number: 2006083584

PATIENT
  Age: 68 Year
  Sex: Male
  Weight: 68 kg

DRUGS (6)
  1. ATORVASTATIN CALCIUM [Suspect]
     Indication: LOW DENSITY LIPOPROTEIN INCREASED
     Dosage: 20 MG (20 MG, 1 IN 1 D), ORAL
     Route: 048
     Dates: start: 20030101
  2. EMCONCOR (BISOPROLOL) [Concomitant]
  3. ZESTRIL [Concomitant]
  4. LEXATIN (BROMAZEPAM) [Concomitant]
  5. OMEPRAZOLE [Concomitant]
  6. PROSCAR [Concomitant]

REACTIONS (10)
  - ARTHRALGIA [None]
  - BLINDNESS UNILATERAL [None]
  - BLOOD CHOLESTEROL INCREASED [None]
  - BLOOD CREATINE PHOSPHOKINASE INCREASED [None]
  - CATARACT [None]
  - FATIGUE [None]
  - PAIN [None]
  - TRANSAMINASES INCREASED [None]
  - TREATMENT NONCOMPLIANCE [None]
  - VISION BLURRED [None]
